FAERS Safety Report 21835443 (Version 3)
Quarter: 2023Q1

REPORT INFORMATION
  Report Type: Spontaneous
  Country: DE (occurrence: DE)
  Receive Date: 20230109
  Receipt Date: 20230224
  Transmission Date: 20230417
  Serious: Yes (Other)
  Sender: FDA-Public Use
  Company Number: DE-002147023-NVSC2023DE001629

PATIENT
  Sex: Female

DRUGS (6)
  1. COSENTYX [Suspect]
     Active Substance: SECUKINUMAB
     Indication: Rheumatic disorder
     Dosage: 150 MG, QMO (STARTED FOR ABOUT 1 YEAR)
     Route: 065
  2. COSENTYX [Suspect]
     Active Substance: SECUKINUMAB
     Indication: Overlap syndrome
     Dosage: 150 MG, QMO
     Route: 065
  3. COSENTYX [Suspect]
     Active Substance: SECUKINUMAB
     Indication: Collagen disorder
  4. COSENTYX [Suspect]
     Active Substance: SECUKINUMAB
     Indication: Psoriatic arthropathy
  5. COSENTYX [Suspect]
     Active Substance: SECUKINUMAB
     Indication: Rheumatoid arthritis
  6. COSENTYX [Suspect]
     Active Substance: SECUKINUMAB
     Indication: Synovial cyst

REACTIONS (23)
  - Autoimmune thyroiditis [Unknown]
  - Weight decreased [Not Recovered/Not Resolved]
  - Coronavirus infection [Unknown]
  - Foreign body in eye [Not Recovered/Not Resolved]
  - Eye pain [Not Recovered/Not Resolved]
  - Eye irritation [Not Recovered/Not Resolved]
  - Eye colour change [Not Recovered/Not Resolved]
  - Dry eye [Not Recovered/Not Resolved]
  - Somnolence [Not Recovered/Not Resolved]
  - Productive cough [Not Recovered/Not Resolved]
  - Urinary tract infection [Recovered/Resolved]
  - Urethral disorder [Not Recovered/Not Resolved]
  - pH body fluid abnormal [Unknown]
  - Dysuria [Not Recovered/Not Resolved]
  - Arthralgia [Unknown]
  - Fatigue [Not Recovered/Not Resolved]
  - Gait disturbance [Not Recovered/Not Resolved]
  - Dyspnoea [Unknown]
  - Neurodermatitis [Unknown]
  - Rhinitis [Not Recovered/Not Resolved]
  - Infection [Unknown]
  - Cystitis [Not Recovered/Not Resolved]
  - Product use in unapproved indication [Unknown]

NARRATIVE: CASE EVENT DATE: 20220101
